FAERS Safety Report 25290187 (Version 3)
Quarter: 2025Q2

REPORT INFORMATION
  Report Type: Report from Study
  Country: US (occurrence: US)
  Receive Date: 20250510
  Receipt Date: 20250611
  Transmission Date: 20250716
  Serious: Yes (Other)
  Sender: ACADIA PHARMACEUTICALS
  Company Number: US-ACADIA PHARMACEUTICALS INC.-ACA-2025-PIM-005319

PATIENT
  Sex: Female

DRUGS (4)
  1. NUPLAZID [Suspect]
     Active Substance: PIMAVANSERIN TARTRATE
     Indication: Parkinson^s disease psychosis
     Dosage: 34 MILLIGRAM, QD
     Route: 048
     Dates: start: 20250502
  2. NUPLAZID [Suspect]
     Active Substance: PIMAVANSERIN TARTRATE
     Indication: Parkinson^s disease
  3. NUPLAZID [Suspect]
     Active Substance: PIMAVANSERIN TARTRATE
     Indication: Hallucination
  4. NUPLAZID [Suspect]
     Active Substance: PIMAVANSERIN TARTRATE
     Indication: Delusion

REACTIONS (12)
  - Hallucination, visual [Not Recovered/Not Resolved]
  - Delusion [Not Recovered/Not Resolved]
  - Dysgraphia [Not Recovered/Not Resolved]
  - Reading disorder [Not Recovered/Not Resolved]
  - Memory impairment [Not Recovered/Not Resolved]
  - Hypoacusis [Not Recovered/Not Resolved]
  - Fatigue [Unknown]
  - Hypokinesia [Unknown]
  - Speech disorder [Unknown]
  - Depression [Not Recovered/Not Resolved]
  - Visual impairment [Not Recovered/Not Resolved]
  - Confusional state [Not Recovered/Not Resolved]
